FAERS Safety Report 14983396 (Version 1)
Quarter: 2018Q2

REPORT INFORMATION
  Report Type: Spontaneous
  Country: US (occurrence: US)
  Receive Date: 20180607
  Receipt Date: 20180607
  Transmission Date: 20180711
  Serious: No
  Sender: FDA-Public Use
  Company Number: US-JNJFOC-20180541247

PATIENT
  Age: 68 Year
  Sex: Female
  Weight: 72.56 kg

DRUGS (6)
  1. AVASTIN [Concomitant]
     Active Substance: BEVACIZUMAB
     Indication: PRODUCT USED FOR UNKNOWN INDICATION
     Route: 065
  2. TYLENOL [Suspect]
     Active Substance: ACETAMINOPHEN
     Indication: HEADACHE
     Route: 065
  3. ZEJULA [Concomitant]
     Active Substance: NIRAPARIB
     Indication: OVARIAN CANCER
     Route: 048
     Dates: start: 20180217
  4. ZEJULA [Concomitant]
     Active Substance: NIRAPARIB
     Indication: OVARIAN CANCER
     Route: 048
     Dates: start: 20180303
  5. TYLENOL [Suspect]
     Active Substance: ACETAMINOPHEN
     Route: 065
  6. ZEJULA [Concomitant]
     Active Substance: NIRAPARIB
     Indication: OVARIAN CANCER
     Route: 048
     Dates: start: 20180221

REACTIONS (1)
  - Drug ineffective [Unknown]
